FAERS Safety Report 7081197-4 (Version None)
Quarter: 2010Q4

REPORT INFORMATION
  Report Type: 
  Country: None (occurrence: None)
  Receive Date: 20101103
  Receipt Date: 20101027
  Transmission Date: 20110411
  Serious: Yes (Other)
  Sender: FDA-Public Use
  Company Number: US-ROCHE-735942

PATIENT
  Sex: Male
  Weight: 68.5 kg

DRUGS (1)
  1. AVASTIN [Suspect]
     Indication: MACULAR DEGENERATION
     Dosage: DOSE: 1.25 MG/0.05 ML
     Route: 050
     Dates: start: 20100722

REACTIONS (2)
  - PRODUCT QUALITY ISSUE [None]
  - VITRITIS [None]
